FAERS Safety Report 19181949 (Version 2)
Quarter: 2021Q2

REPORT INFORMATION
  Report Type: Spontaneous
  Country: US (occurrence: US)
  Receive Date: 20210426
  Receipt Date: 20210507
  Transmission Date: 20210717
  Serious: Yes (Other)
  Sender: FDA-Public Use
  Company Number: US-BAUSCH-BL-2021-013484

PATIENT
  Age: 51 Year
  Sex: Male
  Weight: 72.64 kg

DRUGS (3)
  1. VYZULTA [Suspect]
     Active Substance: LATANOPROSTENE BUNOD
     Indication: GLAUCOMA
     Route: 047
     Dates: start: 20210413, end: 202104
  2. LORAZEPAM. [Suspect]
     Active Substance: LORAZEPAM
     Indication: ANXIETY
     Dosage: AS NEEDED
     Route: 048
     Dates: start: 20210413
  3. LORAZEPAM. [Suspect]
     Active Substance: LORAZEPAM
     Indication: DYSPNOEA
     Route: 048

REACTIONS (4)
  - Dyspnoea [Recovering/Resolving]
  - Drug ineffective [Unknown]
  - Blood pressure increased [Recovering/Resolving]
  - Anxiety [Not Recovered/Not Resolved]

NARRATIVE: CASE EVENT DATE: 20210413
